FAERS Safety Report 5508668-3 (Version None)
Quarter: 2007Q4

REPORT INFORMATION
  Report Type: 
  Country: None (occurrence: None)
  Receive Date: 20071107
  Receipt Date: 20071029
  Transmission Date: 20080405
  Serious: Yes (Hospitalization)
  Sender: FDA-Public Use
  Company Number: US-AMGEN-QUU250272

PATIENT
  Sex: Female

DRUGS (2)
  1. ENBREL [Suspect]
     Indication: RHEUMATOID ARTHRITIS
     Route: 058
     Dates: start: 19990101
  2. METHOTREXATE [Concomitant]
     Route: 048

REACTIONS (5)
  - ABDOMINAL HERNIA REPAIR [None]
  - ABSCESS [None]
  - HIATUS HERNIA [None]
  - INTESTINAL OBSTRUCTION [None]
  - OESOPHAGEAL OPERATION [None]
